FAERS Safety Report 6192615-8 (Version None)
Quarter: 2009Q2

REPORT INFORMATION
  Report Type: 
  Country: None (occurrence: None)
  Receive Date: 20090513
  Receipt Date: 20090513
  Transmission Date: 20091009
  Serious: Yes (Hospitalization, Other)
  Sender: FDA-Public Use
  Company Number: None

PATIENT
  Sex: Male
  Weight: 90.7194 kg

DRUGS (1)
  1. AVELOX [Suspect]
     Indication: BACTERIAL INFECTION
     Dosage: 400MG 1 DAY
     Dates: start: 20090214, end: 20090216

REACTIONS (10)
  - ARTHRALGIA [None]
  - ASTHENIA [None]
  - BLOOD TEST ABNORMAL [None]
  - HYPOAESTHESIA [None]
  - MUSCULOSKELETAL PAIN [None]
  - MYALGIA [None]
  - PAIN IN EXTREMITY [None]
  - PARAESTHESIA [None]
  - SWELLING [None]
  - TENDON PAIN [None]
